FAERS Safety Report 18319167 (Version 1)
Quarter: 2020Q3

REPORT INFORMATION
  Report Type: Spontaneous
  Country: US (occurrence: US)
  Receive Date: 20200928
  Receipt Date: 20200928
  Transmission Date: 20201103
  Serious: Yes (Life-Threatening, Hospitalization)
  Sender: FDA-Public Use
  Company Number: None

PATIENT
  Age: 80 Year
  Sex: Female
  Weight: 81 kg

DRUGS (1)
  1. MUPIROCIN OINTMENT [Suspect]
     Active Substance: MUPIROCIN
     Indication: WOUND
     Dosage: ?          QUANTITY:1 APPLICATION;?
     Route: 061

REACTIONS (6)
  - Muscle tightness [None]
  - Swollen tongue [None]
  - Dyspnoea [None]
  - Skin discolouration [None]
  - Cyanosis [None]
  - Pruritus [None]

NARRATIVE: CASE EVENT DATE: 20200920
